FAERS Safety Report 11509232 (Version 1)
Quarter: 2015Q3

REPORT INFORMATION
  Report Type: Spontaneous
  Country: DE (occurrence: JP)
  Receive Date: 20150915
  Receipt Date: 20150915
  Transmission Date: 20151125
  Serious: Yes (Hospitalization)
  Sender: FDA-Public Use
  Company Number: JP-FRI-1000079415

PATIENT
  Sex: Female

DRUGS (11)
  1. SENNOSIDE [Concomitant]
     Active Substance: SENNOSIDES
  2. THYRADIN S [Concomitant]
     Active Substance: LEVOTHYROXINE SODIUM
  3. MERISLON [Concomitant]
     Active Substance: BETAHISTINE MESILATE
  4. NORVASC [Suspect]
     Active Substance: AMLODIPINE BESYLATE
     Dosage: 7.5 MG
     Route: 048
  5. VEMAS [Concomitant]
  6. ECARD [Concomitant]
     Active Substance: CANDESARTAN CILEXETIL\HYDROCHLOROTHIAZIDE
     Dates: end: 20150704
  7. MEMANTINE. [Suspect]
     Active Substance: MEMANTINE
     Route: 048
     Dates: end: 20150623
  8. LIPOVAS [Suspect]
     Active Substance: PRAVASTATIN SODIUM
     Route: 048
     Dates: end: 20150623
  9. RENIVACE [Concomitant]
     Active Substance: ENALAPRIL
  10. MAINTATE [Concomitant]
     Active Substance: BISOPROLOL FUMARATE
  11. ZYLORIC [Suspect]
     Active Substance: ALLOPURINOL
     Route: 048
     Dates: end: 20150623

REACTIONS (3)
  - Blood creatine phosphokinase increased [Recovered/Resolved]
  - Alanine aminotransferase increased [Recovered/Resolved]
  - Aspartate aminotransferase increased [Recovered/Resolved]
